FAERS Safety Report 5328359-1 (Version None)
Quarter: 2007Q2

REPORT INFORMATION
  Report Type: 
  Country: None (occurrence: None)
  Receive Date: 20070514
  Receipt Date: 20070428
  Transmission Date: 20071010
  Serious: Yes (Other)
  Sender: FDA-Public Use
  Company Number: 2007BM000051

PATIENT
  Age: 32 Year
  Sex: Male

DRUGS (2)
  1. PREDNISOLONE [Suspect]
     Indication: INTERSTITIAL LUNG DISEASE
     Dosage: QD
  2. ORAPRED [Suspect]

REACTIONS (4)
  - LIPOMATOSIS [None]
  - MYELOPATHY [None]
  - PARAPARESIS [None]
  - SPINAL CORD COMPRESSION [None]
